FAERS Safety Report 4973355-7 (Version None)
Quarter: 2006Q2

REPORT INFORMATION
  Report Type: 
  Country: None (occurrence: None)
  Receive Date: 20060414
  Receipt Date: 20060410
  Transmission Date: 20061013
  Serious: Yes (Hospitalization)
  Sender: FDA-Public Use
  Company Number: ES-BOEHRINGER INGELHEIM PHARMACEUTICALS, INC.-2006-DE-01890GD

PATIENT
  Age: 71 Year
  Sex: Male

DRUGS (4)
  1. PERSANTIN [Suspect]
     Route: 048
  2. SEGURIL [Suspect]
     Route: 048
  3. ALDACTONE [Suspect]
     Route: 048
  4. COZAAR [Suspect]
     Route: 048

REACTIONS (3)
  - CARDIAC FAILURE [None]
  - DUODENAL ULCER HAEMORRHAGE [None]
  - HELICOBACTER PYLORI IDENTIFICATION TEST POSITIVE [None]
